FAERS Safety Report 8384617-8 (Version None)
Quarter: 2012Q2

REPORT INFORMATION
  Report Type: 
  Country: None (occurrence: None)
  Receive Date: 20120524
  Receipt Date: 20120516
  Transmission Date: 20120825
  Serious: Yes (Hospitalization, Other)
  Sender: FDA-Public Use
  Company Number: JP-VERTEX PHARMACEUTICALS INC.-AE-2012-005508

PATIENT
  Age: 72 Year
  Sex: Male

DRUGS (9)
  1. REBETOL [Concomitant]
     Route: 048
  2. REBETOL [Concomitant]
     Route: 048
     Dates: start: 20120222
  3. REBETOL [Concomitant]
     Route: 048
     Dates: start: 20120411, end: 20120411
  4. PEG-INTRON [Concomitant]
     Route: 058
     Dates: start: 20120208
  5. PEG-INTRON [Concomitant]
     Route: 058
     Dates: start: 20120222, end: 20120404
  6. TELAVIC (TELAPREVIR) [Suspect]
     Indication: HEPATITIS C
     Route: 048
     Dates: start: 20120208
  7. REBETOL [Concomitant]
     Indication: HEPATITIS C
     Route: 048
     Dates: start: 20120208
  8. TELAVIC (TELAPREVIR) [Suspect]
     Route: 048
     Dates: start: 20120222, end: 20120411
  9. PEG-INTRON [Concomitant]
     Route: 058
     Dates: start: 20120411, end: 20120411

REACTIONS (2)
  - RENAL FAILURE ACUTE [None]
  - HAEMOGLOBIN DECREASED [None]
